FAERS Safety Report 4575749-0 (Version None)
Quarter: 2005Q1

REPORT INFORMATION
  Report Type: 
  Country: None (occurrence: None)
  Receive Date: 20050209
  Receipt Date: 20050131
  Transmission Date: 20050727
  Serious: Yes (Hospitalization)
  Sender: FDA-Public Use
  Company Number: US-GLAXOSMITHKLINE-A0542978A

PATIENT
  Age: 52 Year
  Sex: Female
  Weight: 81.8 kg

DRUGS (2)
  1. GOODY'S EXTRA STRENGTH HEADACHE POWDER [Suspect]
     Indication: HEADACHE
     Route: 048
  2. TOPROL-XL [Concomitant]
     Indication: HYPERTENSION

REACTIONS (2)
  - AORTIC ANEURYSM [None]
  - CORONARY ARTERY STENOSIS [None]
